FAERS Safety Report 6168004-9 (Version None)
Quarter: 2009Q2

REPORT INFORMATION
  Report Type: 
  Country: None (occurrence: None)
  Receive Date: 20090427
  Receipt Date: 20090417
  Transmission Date: 20091009
  Serious: Yes (Hospitalization)
  Sender: FDA-Public Use
  Company Number: FR-ROCHE-618079

PATIENT
  Sex: Female
  Weight: 58.3 kg

DRUGS (11)
  1. RIBAVIRIN [Suspect]
     Route: 048
     Dates: start: 20081017, end: 20090227
  2. EPOETIN BETA [Suspect]
     Dosage: FREQUENCY : WEEKLY FORM : SYRINGE
     Route: 058
     Dates: start: 20090205, end: 20090219
  3. EPOETIN BETA [Suspect]
     Dosage: DRUG WAS DISCONTINUED ON 23 FEBRUARY 2009
     Route: 058
     Dates: start: 20090223
  4. PEG-INTERFERON ALFA 2A (RO 25-8310) [Suspect]
     Dosage: FORM : SYRINGE. DRUG WAS  PERMANENTLY DISCONTINUED ON 23 FEB 2009
     Route: 058
     Dates: start: 20081017, end: 20090216
  5. MOTILIUM [Concomitant]
     Dates: start: 20081121
  6. XYZAL [Concomitant]
     Dates: start: 20090107
  7. NEULASTA [Concomitant]
     Route: 058
     Dates: start: 20090107, end: 20090223
  8. DEXERYL [Concomitant]
     Dosage: TDD REPORTED AS : 2 APPLIC.
     Dates: start: 20090107
  9. AUGMENTIN '125' [Concomitant]
     Dates: start: 20090223
  10. SOLUPRED [Concomitant]
     Dates: start: 20090201
  11. PARACETAMOL [Concomitant]
     Dosage: TDD REPORTED AS : PRN
     Dates: start: 20081017, end: 20090416

REACTIONS (5)
  - GENERAL PHYSICAL HEALTH DETERIORATION [None]
  - LUNG DISORDER [None]
  - MALAISE [None]
  - PANCYTOPENIA [None]
  - PYREXIA [None]
